FAERS Safety Report 10171906 (Version 1)
Quarter: 2014Q2

REPORT INFORMATION
  Report Type: Report from Study
  Country: US (occurrence: US)
  Receive Date: 20140515
  Receipt Date: 20140515
  Transmission Date: 20141212
  Serious: Yes (Hospitalization, Other)
  Sender: FDA-Public Use
  Company Number: US-PFIZER INC-2014126752

PATIENT
  Age: 63 Year
  Sex: Female
  Weight: 78.05 kg

DRUGS (31)
  1. VFEND [Suspect]
     Indication: ASPERGILLUS INFECTION
     Dosage: 200 MG, 2X/DAY
     Route: 048
     Dates: start: 20140321
  2. IDELALISIB [Suspect]
     Indication: CHRONIC LYMPHOCYTIC LEUKAEMIA
     Dosage: 150 MG, 2X/DAY
     Route: 048
     Dates: start: 20131003, end: 20131212
  3. IDELALISIB [Suspect]
     Dosage: 100 MG, 2X/DAY
     Route: 048
     Dates: start: 20140113, end: 20140327
  4. OFATUMUMAB [Suspect]
     Indication: CHRONIC LYMPHOCYTIC LEUKAEMIA
     Dosage: 100 MG, Q 1 MONTH
     Route: 042
     Dates: start: 20131003, end: 20140313
  5. EFFEXOR-XR [Concomitant]
     Dosage: UNK
     Dates: start: 20130920
  6. BACTRIM DS [Concomitant]
     Dosage: UNK
     Dates: start: 20131017
  7. LOTEMAX [Concomitant]
     Dosage: UNK
     Dates: start: 20131202
  8. REFRESH PLUS [Concomitant]
     Dosage: UNK
     Dates: start: 20131015
  9. HUMULIN R [Concomitant]
     Dosage: UNK
     Dates: start: 20131218
  10. NORPRAMIN [Concomitant]
     Dosage: UNK
     Dates: start: 20140314, end: 20140324
  11. NORVASC [Concomitant]
     Dosage: UNK
     Dates: start: 20140206, end: 20140314
  12. LIDOCAINE [Concomitant]
     Dosage: UNK
     Dates: start: 20131003
  13. ZOVIRAX [Concomitant]
     Dosage: UNK
     Dates: start: 20131002
  14. PROTONIX [Concomitant]
     Dosage: UNK
     Dates: start: 20131002
  15. SYNTHROID [Concomitant]
     Dosage: UNK
     Dates: start: 20130930
  16. NEURONTIN [Concomitant]
     Dosage: UNK
     Dates: start: 20131004
  17. ATIVAN [Concomitant]
  18. ZANTAC [Concomitant]
  19. DELTASONE [Concomitant]
  20. CARBOXYMETHYLCELLULOSE SODIUM [Concomitant]
  21. DOCUSATE SODIUM [Concomitant]
  22. ENOXAPARIN [Concomitant]
  23. FAMOTIDINE [Concomitant]
  24. MAGNESIUM OXIDE [Concomitant]
  25. ACETAMINOPHEN [Concomitant]
  26. ALBUTEROL [Concomitant]
  27. BISACODYL [Concomitant]
  28. LOPERAMIDE [Concomitant]
  29. MAGNESIUM HYDROXIDE [Concomitant]
  30. ONDANSETRON [Concomitant]
  31. SODIUM CHLORIDE [Concomitant]

REACTIONS (2)
  - Systemic inflammatory response syndrome [Recovered/Resolved]
  - Aspergillus infection [Not Recovered/Not Resolved]
